FAERS Safety Report 7624791-1 (Version None)
Quarter: 2011Q3

REPORT INFORMATION
  Report Type: 
  Country: None (occurrence: None)
  Receive Date: 20110720
  Receipt Date: 20080730
  Transmission Date: 20111222
  Serious: Yes (Other)
  Sender: FDA-Public Use
  Company Number: US-BAYER-200825962NA

PATIENT
  Sex: Male
  Weight: 82.993 kg

DRUGS (23)
  1. MAGNEVIST [Suspect]
     Dosage: 20 ML, ONCE
     Dates: start: 20050624, end: 20050624
  2. ATENOLOL [Concomitant]
  3. NEPHROCAPS [Concomitant]
  4. DILANTIN [Concomitant]
  5. ZETIA [Concomitant]
  6. LONITEN [Concomitant]
  7. TOPROL-XL [Concomitant]
  8. MAGNEVIST [Suspect]
     Dosage: UNK UNK, ONCE
     Dates: start: 20060818, end: 20060818
  9. OMNISCAN [Suspect]
     Indication: NUCLEAR MAGNETIC RESONANCE IMAGING
  10. RENA-VITE [ASCORBIC ACID,VITAMIN B NOS] [Concomitant]
  11. MAGNEVIST [Suspect]
     Indication: NUCLEAR MAGNETIC RESONANCE IMAGING BRAIN
     Dosage: UNK UNK, ONCE
     Dates: start: 20021220, end: 20021220
  12. MAGNEVIST [Suspect]
     Dosage: UNK, ONCE
     Dates: start: 20030402, end: 20030402
  13. MAGNEVIST [Suspect]
     Dosage: UNK, ONCE
     Dates: start: 20031220, end: 20031220
  14. MAGNEVIST [Suspect]
     Dosage: 19 ML, ONCE
     Dates: start: 20060818, end: 20060818
  15. MAGNEVIST [Suspect]
     Dosage: UNK UNK, ONCE
     Dates: start: 20050625, end: 20050625
  16. COZAAR [Concomitant]
  17. MAGNEVIST [Suspect]
     Dosage: 20 ML, ONCE
     Dates: start: 20050527, end: 20050527
  18. MAGNEVIST [Suspect]
     Dosage: UNK, ONCE
     Dates: start: 20050625, end: 20050625
  19. DIOVAN [Concomitant]
  20. MAGNEVIST [Suspect]
     Dosage: UNK, ONCE
     Dates: start: 20050713, end: 20050713
  21. INSULIN [Concomitant]
  22. MINOXIDIL [Concomitant]
  23. MAGNEVIST [Suspect]
     Indication: NUCLEAR MAGNETIC RESONANCE IMAGING
     Dosage: 19 ML, ONCE
     Dates: start: 20030323, end: 20030323

REACTIONS (13)
  - INJURY [None]
  - SCAR [None]
  - PAIN [None]
  - GENERAL PHYSICAL HEALTH DETERIORATION [None]
  - ANHEDONIA [None]
  - FIBROSIS [None]
  - ANXIETY [None]
  - NEPHROGENIC SYSTEMIC FIBROSIS [None]
  - MUSCLE CONTRACTURE [None]
  - SKIN FIBROSIS [None]
  - JOINT CONTRACTURE [None]
  - MOBILITY DECREASED [None]
  - EMOTIONAL DISTRESS [None]
